FAERS Safety Report 15763171 (Version 3)
Quarter: 2019Q2

REPORT INFORMATION
  Report Type: Report from Study
  Country: JP (occurrence: JP)
  Receive Date: 20181226
  Receipt Date: 20190509
  Transmission Date: 20190711
  Serious: Yes (Death, Hospitalization, Other)
  Sender: FDA-Public Use
  Company Number: JP-AMGEN-JPNNI2018184863

PATIENT
  Age: 48 Year
  Sex: Male
  Weight: 74.3 kg

DRUGS (6)
  1. CARFILZOMIB [Suspect]
     Active Substance: CARFILZOMIB
     Indication: PLASMA CELL MYELOMA
     Dosage: 16 MILLIGRAM/SQ. METER, QD (EVERYDAY)
     Route: 041
     Dates: start: 20170905, end: 20170906
  2. CARFILZOMIB [Suspect]
     Active Substance: CARFILZOMIB
     Dosage: 52 MILLIGRAM/SQ. METER, QD ((EVERYDAY)
     Route: 041
     Dates: start: 20171001, end: 20171002
  3. CARFILZOMIB [Suspect]
     Active Substance: CARFILZOMIB
     Dosage: 21 MILLIGRAM/SQ. METER (12/9/2017, 13/9, 19/9, 20/9)
     Route: 041
     Dates: start: 20170912, end: 20170920
  4. DEXAMETHASONE. [Concomitant]
     Active Substance: DEXAMETHASONE
     Dosage: 4 MILLIGRAM, QWK
     Route: 065
     Dates: start: 20170906, end: 20170920
  5. DEXAMETHASONE. [Concomitant]
     Active Substance: DEXAMETHASONE
     Indication: PLASMA CELL MYELOMA
     Dosage: 40 MILLIGRAM, QWK
     Route: 065
     Dates: start: 20170905, end: 20170926
  6. DEXAMETHASONE. [Concomitant]
     Active Substance: DEXAMETHASONE
     Dosage: 20 MILLIGRAM, QD (EVERYDAY)
     Route: 065
     Dates: start: 20171001, end: 20171002

REACTIONS (1)
  - Cardiac failure [Fatal]

NARRATIVE: CASE EVENT DATE: 20171003
